FAERS Safety Report 21907014 (Version 1)
Quarter: 2023Q1

REPORT INFORMATION
  Report Type: Report from Study
  Country: JP (occurrence: JP)
  Receive Date: 20230125
  Receipt Date: 20230125
  Transmission Date: 20230417
  Serious: No
  Sender: FDA-Public Use
  Company Number: JP-ORPHANEU-2017000264

PATIENT

DRUGS (7)
  1. CYSTADANE [Suspect]
     Active Substance: BETAINE
     Indication: Homocystinuria
     Dosage: 2GRAM DAILY IN TWO INTAKES(BID)
     Dates: start: 20140805, end: 20160626
  2. CYSTADANE [Suspect]
     Active Substance: BETAINE
     Dosage: 3.5 GRAM DAILY, BID OR TID
     Dates: start: 20160627, end: 20180917
  3. CYSTADANE [Suspect]
     Active Substance: BETAINE
     Dosage: 4.8 GRAM DAILY, BID
     Dates: start: 20180918, end: 20190610
  4. CYSTADANE [Suspect]
     Active Substance: BETAINE
     Dosage: 5.GRAM DAILY, BID
     Dates: start: 20190611, end: 20201117
  5. CYSTADANE [Suspect]
     Active Substance: BETAINE
     Dosage: 6.0 GRAM DAILY, BID
     Dates: start: 20201118
  6. TEGRETOL [Concomitant]
     Active Substance: CARBAMAZEPINE
     Indication: Disease complication
     Dosage: 180 MILLIGRAM, BID
     Route: 048
     Dates: end: 20190204
  7. RIVOTRIL [Concomitant]
     Active Substance: CLONAZEPAM
     Indication: Disease complication
     Dosage: 0.6 MILLIGRAM, BID
     Route: 048
     Dates: end: 20180108

REACTIONS (2)
  - Dermatitis atopic [Not Recovered/Not Resolved]
  - Asteatosis [Not Recovered/Not Resolved]

NARRATIVE: CASE EVENT DATE: 20160524
